FAERS Safety Report 4728430-9 (Version None)
Quarter: 2005Q3

REPORT INFORMATION
  Report Type: 
  Country: None (occurrence: None)
  Receive Date: 20050729
  Receipt Date: 20041213
  Transmission Date: 20060218
  Serious: No
  Sender: FDA-Public Use
  Company Number: US-GLAXOSMITHKLINE-A0537078A

PATIENT
  Age: 14 Month
  Sex: Female

DRUGS (1)
  1. ZANTAC [Suspect]
     Dosage: 3.5ML TWICE PER DAY
     Route: 048
     Dates: start: 20041208

REACTIONS (2)
  - DIARRHOEA [None]
  - INSOMNIA [None]
